FAERS Safety Report 17261501 (Version 1)
Quarter: 2020Q1

REPORT INFORMATION
  Report Type: Spontaneous
  Country: FR (occurrence: FR)
  Receive Date: 20200113
  Receipt Date: 20200113
  Transmission Date: 20200409
  Serious: Yes (Hospitalization)
  Sender: FDA-Public Use
  Company Number: FR-ACCORD-169350

PATIENT
  Age: 75 Year
  Sex: Male
  Weight: 67 kg

DRUGS (14)
  1. KARDEGIC [Concomitant]
     Active Substance: ASPIRIN DL-LYSINE
     Route: 048
  2. PANTOPRAZOLE [Concomitant]
     Active Substance: PANTOPRAZOLE
     Route: 048
  3. TERALITHE [Concomitant]
     Active Substance: LITHIUM CARBONATE
     Dosage: STRENGTH:  400 MG, PROLONGED-RELEASE SCORED TABLET
     Route: 048
  4. LEVOTHYROXINE. [Concomitant]
     Active Substance: LEVOTHYROXINE
     Route: 048
  5. FLUOROURACILE ACCORD [Suspect]
     Active Substance: FLUOROURACIL
     Indication: OESOPHAGEAL CARCINOMA
     Dosage: FOLRIRI TREATMENT WITH 75% 5FU AND IRINOTECAN
     Route: 041
     Dates: start: 20191114
  6. LOPERAMIDE [Concomitant]
     Active Substance: LOPERAMIDE
     Route: 048
  7. IRINOTECAN [Suspect]
     Active Substance: IRINOTECAN
     Indication: OESOPHAGEAL CARCINOMA
     Dosage: FOLFIRI TREATMENT WITH 75% IRINOTECAN AND 5FU
     Route: 041
     Dates: start: 20191114, end: 20191114
  8. ALFUZOSIN [Concomitant]
     Active Substance: ALFUZOSIN
     Route: 048
  9. AMLODIPINE [Concomitant]
     Active Substance: AMLODIPINE BESYLATE
     Route: 048
  10. SIMVASTATIN. [Concomitant]
     Active Substance: SIMVASTATIN
     Route: 048
  11. METOCLOPRAMIDE. [Concomitant]
     Active Substance: METOCLOPRAMIDE
     Route: 048
  12. FOLINIC ACID [Suspect]
     Active Substance: LEUCOVORIN
     Indication: CHEMOTHERAPY TOXICITY ATTENUATION
     Dosage: FOLFIRI TREATMENT
     Route: 041
     Dates: start: 20191114
  13. NEUPRO [Concomitant]
     Active Substance: ROTIGOTINE
     Route: 062
  14. PARACETAMOL [Concomitant]
     Active Substance: ACETAMINOPHEN
     Route: 048

REACTIONS (3)
  - Paraesthesia [Unknown]
  - Diarrhoea [Recovered/Resolved]
  - Hypokalaemia [Recovered/Resolved]

NARRATIVE: CASE EVENT DATE: 20191120
